FAERS Safety Report 6238955-5 (Version None)
Quarter: 2009Q2

REPORT INFORMATION
  Report Type: 
  Country: None (occurrence: None)
  Receive Date: 20090622
  Receipt Date: 20090609
  Transmission Date: 20091009
  Serious: Yes (Hospitalization)
  Sender: FDA-Public Use
  Company Number: PHHY2009GB23191

PATIENT
  Sex: Female

DRUGS (2)
  1. CLOZARIL [Suspect]
     Indication: SCHIZOPHRENIA
     Dosage: UNK
     Dates: start: 20080711
  2. CLOZARIL [Suspect]
     Dosage: UNK
     Dates: start: 20080603

REACTIONS (3)
  - MENTAL IMPAIRMENT [None]
  - THERAPY CESSATION [None]
  - TREATMENT NONCOMPLIANCE [None]
